FAERS Safety Report 4562234-5 (Version None)
Quarter: 2005Q1

REPORT INFORMATION
  Report Type: 
  Country: None (occurrence: None)
  Receive Date: 20050124
  Receipt Date: 20050111
  Transmission Date: 20050727
  Serious: No
  Sender: FDA-Public Use
  Company Number: US-2004-032344

PATIENT
  Age: 52 Year
  Sex: Female
  Weight: 92.1 kg

DRUGS (9)
  1. BETASERON [Suspect]
     Indication: RELAPSING-REMITTING MULTIPLE SCLEROSIS
     Dosage: 9.6 MIU, EVERY 2 D, SUBCUTANEOUS
     Route: 058
     Dates: start: 20030616, end: 20040830
  2. NEURONTIN [Concomitant]
  3. PROZAC [Concomitant]
  4. DITROPAN XL [Concomitant]
  5. KLONOPIN [Concomitant]
  6. ZOCOR [Concomitant]
  7. ZETIA [Concomitant]
  8. TYLENOL [Concomitant]
  9. ALEVE [Concomitant]

REACTIONS (12)
  - ALANINE AMINOTRANSFERASE INCREASED [None]
  - ASPARTATE AMINOTRANSFERASE INCREASED [None]
  - BLOOD ALKALINE PHOSPHATASE INCREASED [None]
  - CHEST DISCOMFORT [None]
  - CONDITION AGGRAVATED [None]
  - DECREASED APPETITE [None]
  - DYSPNOEA [None]
  - FLANK PAIN [None]
  - GAMMA-GLUTAMYLTRANSFERASE INCREASED [None]
  - MULTIPLE SCLEROSIS [None]
  - SINUSITIS [None]
  - UPPER RESPIRATORY TRACT INFECTION [None]
